FAERS Safety Report 15863332 (Version 2)
Quarter: 2019Q1

REPORT INFORMATION
  Report Type: Spontaneous
  Country: PT (occurrence: PT)
  Receive Date: 20190124
  Receipt Date: 20190129
  Transmission Date: 20190417
  Serious: Yes (Hospitalization, Other)
  Sender: FDA-Public Use
  Company Number: PT-PFIZER INC-2019028445

PATIENT
  Age: 59 Year
  Sex: Female

DRUGS (1)
  1. AMIODARONE HCL [Suspect]
     Active Substance: AMIODARONE HYDROCHLORIDE
     Indication: ATRIAL FIBRILLATION
     Dosage: UNK
     Route: 065

REACTIONS (7)
  - Computerised tomogram thorax abnormal [Unknown]
  - Dyspnoea [Unknown]
  - Malaise [Unknown]
  - Pulmonary toxicity [Unknown]
  - Palpitations [Unknown]
  - Pleural effusion [Unknown]
  - Pneumonitis [Recovered/Resolved]
